FAERS Safety Report 6427706-7 (Version None)
Quarter: 2009Q4

REPORT INFORMATION
  Report Type: 
  Country: None (occurrence: None)
  Receive Date: 20091105
  Receipt Date: 20091028
  Transmission Date: 20100525
  Serious: Yes (Hospitalization)
  Sender: FDA-Public Use
  Company Number: US-BIOGENIDEC-193881

PATIENT
  Age: 49 Year
  Sex: Female
  Weight: 68 kg

DRUGS (9)
  1. AVONEX [Suspect]
     Indication: MULTIPLE SCLEROSIS
     Route: 030
     Dates: start: 19960101, end: 20031221
  2. AVONEX [Suspect]
     Route: 030
     Dates: start: 20040101
  3. PREDNISONE TAB [Concomitant]
     Indication: CHRONIC FATIGUE SYNDROME
  4. LIPITOR [Concomitant]
     Indication: BLOOD CHOLESTEROL INCREASED
     Dates: start: 20030701
  5. DIAMOX SRC [Concomitant]
     Indication: HEADACHE
  6. MIDAMOR [Concomitant]
     Indication: MENIERE'S DISEASE
     Dates: end: 20031222
  7. AMANTADINE HYDROCHLORIDE [Concomitant]
     Indication: CHRONIC FATIGUE SYNDROME
  8. TEGRETOL [Concomitant]
     Indication: CONVULSION
     Dates: end: 20031201
  9. DEPAKOTE [Concomitant]
     Indication: CONVULSION

REACTIONS (7)
  - AMNESIA [None]
  - BRAIN ABSCESS [None]
  - CONVULSION [None]
  - ENCEPHALITIS [None]
  - MENINGITIS LISTERIA [None]
  - READING DISORDER [None]
  - SPEECH DISORDER [None]
